FAERS Safety Report 8384685-3 (Version None)
Quarter: 2012Q2

REPORT INFORMATION
  Report Type: 
  Country: None (occurrence: None)
  Receive Date: 20120524
  Receipt Date: 20120514
  Transmission Date: 20120825
  Serious: Yes (Hospitalization, Other)
  Sender: FDA-Public Use
  Company Number: US-ELI_LILLY_AND_COMPANY-US201204004224

PATIENT
  Sex: Male

DRUGS (16)
  1. FUROSEMIDE [Concomitant]
  2. FORTEO [Suspect]
     Dosage: 20 MG, QD
  3. FOLIC ACID [Concomitant]
  4. POTASSIUM CHLORIDE [Concomitant]
  5. VITAMINS NOS [Concomitant]
  6. CALCIUM [Concomitant]
  7. DIOVAN [Concomitant]
  8. XARELTO [Concomitant]
  9. CALCIUM CARBONATE [Concomitant]
     Dosage: UNK
  10. ASPIRIN [Concomitant]
     Dosage: UNK
  11. FORTEO [Suspect]
     Indication: OSTEOPOROSIS
     Dosage: 20 UG, QD
     Dates: start: 20110101
  12. MELOXICAM [Concomitant]
  13. REMICADE [Concomitant]
     Dosage: UNK
  14. HYDROCODONE [Concomitant]
  15. METHOTREXATE [Concomitant]
     Dosage: UNK
  16. MULTIVITAMIN [Concomitant]
     Dosage: UNK

REACTIONS (9)
  - KNEE ARTHROPLASTY [None]
  - KNEE OPERATION [None]
  - CARTILAGE INJURY [None]
  - DEVICE RELATED INFECTION [None]
  - INFECTION [None]
  - SWELLING [None]
  - DEVICE DISLOCATION [None]
  - FALL [None]
  - JOINT INJURY [None]
